FAERS Safety Report 24319442 (Version 2)
Quarter: 2025Q2

REPORT INFORMATION
  Report Type: Spontaneous
  Country: US (occurrence: US)
  Receive Date: 20240914
  Receipt Date: 20250418
  Transmission Date: 20250717
  Serious: No
  Sender: ROCHE
  Company Number: US-ROCHE-10000080296

PATIENT
  Sex: Female

DRUGS (13)
  1. XOLAIR PFS [Suspect]
     Active Substance: OMALIZUMAB
     Indication: Interstitial lung disease
     Dosage: STRENGTH: 150 MG/ML
     Route: 058
  2. XOLAIR PFS [Suspect]
     Active Substance: OMALIZUMAB
     Route: 058
  3. ALBUTEROL SU POW [Concomitant]
     Route: 048
  4. ASPIRIN POW [Concomitant]
     Route: 048
  5. ESTRACE TAB 0.5MG [Concomitant]
  6. LATANOPROST SOL 0.005% [Concomitant]
  7. METOPROLOLS TBZ 200MG [Concomitant]
  8. MONTELUKAST SODIUM [Concomitant]
     Active Substance: MONTELUKAST SODIUM
  9. SYMBICORT AER 160-4.5MCG/ [Concomitant]
  10. VITAMIN B12 SUB 3000MCG [Concomitant]
  11. VITAMIN C CHE [Concomitant]
  12. VITAMIN D LIQ 10MCG/ML [Concomitant]
  13. PANTOPRAZOLE TBE 40MG [Concomitant]

REACTIONS (4)
  - COVID-19 [Unknown]
  - Neuralgia [Unknown]
  - Off label use [Unknown]
  - Asthma [Not Recovered/Not Resolved]
